FAERS Safety Report 12070136 (Version 1)
Quarter: 2016Q1

REPORT INFORMATION
  Report Type: Spontaneous
  Country: US (occurrence: US)
  Receive Date: 20160211
  Receipt Date: 20160211
  Transmission Date: 20160526
  Serious: Yes (Hospitalization, Other)
  Sender: FDA-Public Use
  Company Number: US-ASTRAZENECA-2016SE11873

PATIENT
  Age: 67 Year
  Sex: Female
  Weight: 102.1 kg

DRUGS (10)
  1. NORVASC [Concomitant]
     Active Substance: AMLODIPINE BESYLATE
     Indication: HYPERTENSION
     Route: 048
     Dates: start: 201403
  2. LISINOPRIL. [Suspect]
     Active Substance: LISINOPRIL
     Indication: HYPERTENSION
     Route: 048
  3. CRESTOR [Suspect]
     Active Substance: ROSUVASTATIN CALCIUM
     Indication: BLOOD CHOLESTEROL INCREASED
     Route: 048
     Dates: start: 201503, end: 201506
  4. ATORVASTATIN [Suspect]
     Active Substance: ATORVASTATIN
     Indication: BLOOD CHOLESTEROL INCREASED
     Route: 065
     Dates: start: 2014
  5. PROZAC [Concomitant]
     Active Substance: FLUOXETINE HYDROCHLORIDE
     Indication: PERSISTENT DEPRESSIVE DISORDER
     Dosage: GENERIC, 60 MG ONCE A DAY, STARTED TAKING PRODUCT 20 TO 30 YEARS AGO
     Route: 048
  6. ATORVASTATIN [Suspect]
     Active Substance: ATORVASTATIN
     Indication: BLOOD CHOLESTEROL INCREASED
     Dosage: GENERIC LIPITOR, 10 MG, AT NIGHT
     Route: 048
     Dates: start: 201511, end: 201512
  7. HYDROCHLOROTHIAZIDE. [Concomitant]
     Active Substance: HYDROCHLOROTHIAZIDE
     Indication: HYPERTENSION
     Dosage: 25 MG ONCE A DAY, HAS TAKEN FOR A LONG TIME, 7 TO 8 YEARS
     Route: 048
  8. FISH OIL [Concomitant]
     Active Substance: FISH OIL
     Indication: INFLAMMATION
     Dosage: 1200 MG DAILY, STARTED TAKING PRODUCT 7 TO 8 YEARS AGO
     Route: 048
  9. BABY ASPIRIN [Concomitant]
     Active Substance: ASPIRIN
     Indication: PRODUCT USED FOR UNKNOWN INDICATION
     Dosage: 81 MG ONCE A DAY, STARTED TAKING PRODUCT 7 TO 8 YEARS AGO
     Route: 048
  10. FISH OIL [Concomitant]
     Active Substance: FISH OIL
     Indication: CARDIOVASCULAR EVENT PROPHYLAXIS
     Dosage: 1200 MG DAILY, STARTED TAKING PRODUCT 7 TO 8 YEARS AGO
     Route: 048

REACTIONS (7)
  - Abdominal pain [Recovered/Resolved]
  - Urticaria [Recovering/Resolving]
  - Sepsis [Recovered/Resolved]
  - Hypotension [Recovering/Resolving]
  - Drug hypersensitivity [Recovering/Resolving]
  - Infection [Recovering/Resolving]
  - Dyspepsia [Recovered/Resolved]

NARRATIVE: CASE EVENT DATE: 2014
